FAERS Safety Report 8842380 (Version 2)
Quarter: 2014Q3

REPORT INFORMATION
  Report Type: Report from Study
  Country: US (occurrence: US)
  Receive Date: 20121016
  Receipt Date: 20140916
  Transmission Date: 20150326
  Serious: Yes (Death)
  Sender: FDA-Public Use
  Company Number: US-ROCHE-1104501

PATIENT
  Sex: Male

DRUGS (6)
  1. LEUCOVORIN [Concomitant]
     Active Substance: LEUCOVORIN
  2. 5-FU [Concomitant]
     Active Substance: FLUOROURACIL
  3. CAMPTOSAR [Concomitant]
     Active Substance: IRINOTECAN HYDROCHLORIDE
  4. AVASTIN [Suspect]
     Active Substance: BEVACIZUMAB
     Indication: COLORECTAL CANCER
  5. AVASTIN [Suspect]
     Active Substance: BEVACIZUMAB
     Indication: COLON CANCER
     Route: 042
  6. AVASTIN [Suspect]
     Active Substance: BEVACIZUMAB
     Indication: COLON CANCER

REACTIONS (3)
  - Pyrexia [Unknown]
  - Colon cancer metastatic [Fatal]
  - Chills [Unknown]
